FAERS Safety Report 24136981 (Version 1)
Quarter: 2024Q3

REPORT INFORMATION
  Report Type: Spontaneous
  Country: CN (occurrence: CN)
  Receive Date: 20240725
  Receipt Date: 20240725
  Transmission Date: 20241017
  Serious: Yes (Life-Threatening, Hospitalization)
  Sender: ELI LILLY AND CO
  Company Number: CN-ELI_LILLY_AND_COMPANY-CN202407014679

PATIENT
  Age: 51 Year
  Sex: Male
  Weight: 69 kg

DRUGS (3)
  1. CYRAMZA [Suspect]
     Active Substance: RAMUCIRUMAB
     Indication: Gastric cancer
     Dosage: 500 MG, SINGLE (AT ONCE EVERY 21 DAYS)
     Route: 041
     Dates: start: 20240704, end: 20240704
  2. PACLITAXEL [Suspect]
     Active Substance: PACLITAXEL
     Indication: Gastric cancer
     Dosage: 300 MG, SINGLE (AT ONCE EVERY 21 DAYS)
     Route: 041
     Dates: start: 20240704, end: 20240704
  3. SINTILIMAB [Suspect]
     Active Substance: SINTILIMAB
     Indication: Gastric cancer
     Dosage: 200 MG, SINGLE (AT ONCE EVERY 21 DAYS)
     Route: 041
     Dates: start: 20240704, end: 20240704

REACTIONS (1)
  - Myelosuppression [Recovering/Resolving]

NARRATIVE: CASE EVENT DATE: 20240712
